FAERS Safety Report 14956494 (Version 1)
Quarter: 2018Q2

REPORT INFORMATION
  Report Type: Spontaneous
  Country: US (occurrence: US)
  Receive Date: 20180509
  Receipt Date: 20180509
  Transmission Date: 20180711
  Serious: Yes (Hospitalization)
  Sender: FDA-Public Use
  Company Number: None

PATIENT
  Age: 49 Year

DRUGS (1)
  1. TESTOPEL [Suspect]
     Active Substance: TESTOSTERONE
     Indication: TESTICULAR FAILURE
     Dosage: OTHER FREQUENCY:EVERY 4 TO 6 MONTH;?
     Route: 058
     Dates: end: 20171002

REACTIONS (2)
  - Speech disorder [None]
  - Myocardial infarction [None]

NARRATIVE: CASE EVENT DATE: 20180424
